FAERS Safety Report 4522541-9 (Version None)
Quarter: 2004Q4

REPORT INFORMATION
  Report Type: 
  Country: None (occurrence: None)
  Receive Date: 20041209
  Receipt Date: 20041203
  Transmission Date: 20050328
  Serious: Yes (Hospitalization)
  Sender: FDA-Public Use
  Company Number: BR-BRISTOL-MYERS SQUIBB COMPANY-12785903

PATIENT
  Age: 51 Year
  Sex: Male

DRUGS (9)
  1. TEQUIN [Suspect]
     Indication: URINARY TRACT INFECTION
     Route: 048
     Dates: start: 20041112, end: 20041119
  2. VALSARTAN + HCTZ [Concomitant]
     Dosage: 169 MG + 12.5 MG
  3. OMEPRAZOLE [Concomitant]
  4. CLOPIDOGREL BISULFATE [Concomitant]
  5. DEFLAZACORT [Concomitant]
  6. AMLODIPINE [Concomitant]
  7. ASCORBIC ACID [Concomitant]
  8. BUSPIRONE HCL [Concomitant]
  9. FERROUS SULFATE TAB [Concomitant]

REACTIONS (1)
  - MENINGITIS MENINGOCOCCAL [None]
